FAERS Safety Report 8563511-3 (Version None)
Quarter: 2012Q3

REPORT INFORMATION
  Report Type: 
  Country: None (occurrence: None)
  Receive Date: 20120802
  Receipt Date: 20120723
  Transmission Date: 20120928
  Serious: Yes (Hospitalization, Other)
  Sender: FDA-Public Use
  Company Number: US-009507513-1207USA011463

PATIENT

DRUGS (18)
  1. FINASTERIDE [Suspect]
     Dosage: 5 MG, QD
  2. LANTUS [Concomitant]
     Dosage: 70 IU, UNKNOWN
  3. DOXAZOSIN MESYLATE [Suspect]
     Dosage: 8 MG, QD
  4. LISINOPRIL [Concomitant]
     Dosage: 20 MG, UNKNOWN
  5. ASPIRIN [Concomitant]
     Dosage: 81 MG, UNKNOWN
  6. FUROSEMIDE [Concomitant]
     Dosage: 40 MG, UNKNOWN
  7. HYDRALAZINE HCL [Concomitant]
  8. LACTULOSE [Concomitant]
     Dosage: 20 MG, PRN
  9. LEVOTHYROXINE SODIUM [Concomitant]
     Dosage: 88 MICROGRAM, QD
  10. ZOCOR [Suspect]
     Dosage: 20 MG, QD
     Route: 048
  11. TRAVOPROST [Concomitant]
  12. ERGOCALCIFEROL [Concomitant]
     Dosage: 50000 IU, UNK
  13. FERROUS SULFATE TAB [Concomitant]
     Dosage: 325 MG, QD
  14. ZOCOR [Suspect]
     Dosage: 40 MG, QD
     Route: 048
  15. SODIUM POLYSTYRENE SULFONATE [Concomitant]
     Dosage: 30 G, QD
  16. AMLODIPINE BESYLATE [Suspect]
     Dosage: 10 MG, QD
  17. GEMFIBROZIL [Suspect]
     Dosage: 600 MG, BID
  18. METOPROLOL TARTRATE [Concomitant]
     Dosage: 200 MG, UNKNOWN

REACTIONS (6)
  - RENAL FAILURE CHRONIC [None]
  - RHABDOMYOLYSIS [None]
  - ABDOMINAL PAIN [None]
  - MYOPATHY [None]
  - DRUG INTERACTION [None]
  - ABDOMINAL DISTENSION [None]
